FAERS Safety Report 9323796 (Version 1)
Quarter: 2013Q2

REPORT INFORMATION
  Report Type: Spontaneous
  Country: US (occurrence: US)
  Receive Date: 20130603
  Receipt Date: 20130603
  Transmission Date: 20140414
  Serious: Yes (Other)
  Sender: FDA-Public Use
  Company Number: US-PFIZER INC-2013166722

PATIENT
  Age: 88 Year
  Sex: Female
  Weight: 56.7 kg

DRUGS (4)
  1. LYRICA [Suspect]
     Dosage: 75 MG, 3X/DAY
     Route: 048
  2. LYRICA [Suspect]
     Dosage: 75 MG, 4X/DAY
     Route: 048
  3. LYRICA [Suspect]
     Dosage: 100 MG, 3X/DAY
     Route: 048
  4. PLAVIX [Concomitant]
     Dosage: UNK

REACTIONS (3)
  - Dementia [Unknown]
  - General physical health deterioration [Unknown]
  - Pain [Unknown]
